FAERS Safety Report 8932443 (Version 2)
Quarter: 2012Q4

REPORT INFORMATION
  Report Type: Report from Study
  Country: US (occurrence: US)
  Receive Date: 20121128
  Receipt Date: 20121226
  Transmission Date: 20130627
  Serious: Yes (Death, Hospitalization, Other)
  Sender: FDA-Public Use
  Company Number: US-ROCHE-1158238

PATIENT
  Age: 77 Year
  Sex: Male
  Weight: 88.08 kg

DRUGS (1)
  1. CAPECITABINE [Suspect]
     Indication: PANCREATIC CARCINOMA
     Route: 048
     Dates: start: 20080926, end: 20081031

REACTIONS (3)
  - Gastrointestinal haemorrhage [Fatal]
  - Confusional state [Not Recovered/Not Resolved]
  - Jaundice [Not Recovered/Not Resolved]
